FAERS Safety Report 16751653 (Version 1)
Quarter: 2019Q3

REPORT INFORMATION
  Report Type: Spontaneous
  Country: GB (occurrence: GB)
  Receive Date: 20190828
  Receipt Date: 20190828
  Transmission Date: 20191005
  Serious: Yes (Other)
  Sender: FDA-Public Use
  Company Number: GB-TEVA-2019-GB-1097149

PATIENT
  Age: 28 Year
  Sex: Female

DRUGS (1)
  1. LEVETIRACETAM. [Suspect]
     Active Substance: LEVETIRACETAM
     Dosage: TOTAL DAILY DOSE: 3000 (UNITS UNSPECIFIED)

REACTIONS (3)
  - Maternal exposure during pregnancy [Recovered/Resolved]
  - Seizure [Unknown]
  - Drug level decreased [Unknown]
